FAERS Safety Report 6689298-7 (Version None)
Quarter: 2010Q2

REPORT INFORMATION
  Report Type: 
  Country: None (occurrence: None)
  Receive Date: 20100416
  Receipt Date: 20100118
  Transmission Date: 20101027
  Serious: Yes (Death)
  Sender: FDA-Public Use
  Company Number: NSR_00027_2010

PATIENT
  Age: 52 Year
  Sex: Male

DRUGS (3)
  1. PROPRANOLOL [Suspect]
     Indication: DRUG USE FOR UNKNOWN INDICATION
     Dosage: DF ORAL
     Route: 048
  2. BETA BLOCKING AGENTS [Suspect]
     Indication: DRUG USE FOR UNKNOWN INDICATION
     Dosage: DF ORAL
     Route: 048
  3. ETHANOL [Suspect]
     Dosage: ORAL
     Route: 048

REACTIONS (2)
  - COMPLETED SUICIDE [None]
  - POISONING [None]
